FAERS Safety Report 22345904 (Version 1)
Quarter: 2023Q2

REPORT INFORMATION
  Report Type: Report from Study
  Country: GB (occurrence: GB)
  Receive Date: 20230519
  Receipt Date: 20230519
  Transmission Date: 20230722
  Serious: Yes (Hospitalization)
  Sender: FDA-Public Use
  Company Number: GB-ROCHE-2082636

PATIENT
  Age: 67 Year
  Sex: Female

DRUGS (19)
  1. DOCETAXEL [Suspect]
     Active Substance: DOCETAXEL
     Indication: Breast cancer metastatic
     Dosage: 130 MG, EVERY 3 WEEKS
     Route: 042
     Dates: start: 20161110, end: 20161110
  2. DOCETAXEL [Suspect]
     Active Substance: DOCETAXEL
     Dosage: 66 MG, EVERY 3 WEEKS
     Route: 042
     Dates: start: 20170104, end: 20170215
  3. EPIRUBICIN HYDROCHLORIDE [Suspect]
     Active Substance: EPIRUBICIN HYDROCHLORIDE
     Indication: Breast cancer metastatic
     Dosage: 110 MG, EVERY 3 WEEKS
     Route: 042
     Dates: start: 20170424, end: 20170607
  4. EXEMESTANE [Suspect]
     Active Substance: EXEMESTANE
     Indication: Breast cancer metastatic
     Dosage: 25 MG, 1X/DAY
     Route: 048
     Dates: start: 20181211
  5. PERTUZUMAB [Suspect]
     Active Substance: PERTUZUMAB
     Indication: Breast cancer metastatic
     Dosage: 840 MG, LOADING DOSE, 1 CYCLE
     Route: 042
     Dates: start: 20161109, end: 20161109
  6. PERTUZUMAB [Suspect]
     Active Substance: PERTUZUMAB
     Dosage: 420 MG, EVERY 3 WEEKS
     Route: 042
     Dates: start: 20161207, end: 20170405
  7. PERTUZUMAB [Suspect]
     Active Substance: PERTUZUMAB
     Dosage: 420 MG, EVERY 3 WEEKS
     Route: 042
     Dates: start: 20170626, end: 20170922
  8. TRASTUZUMAB [Suspect]
     Active Substance: TRASTUZUMAB
     Indication: Breast cancer metastatic
     Dosage: 600 MG, LOADING DOSE
     Route: 041
     Dates: start: 20161110, end: 20161110
  9. TRASTUZUMAB [Suspect]
     Active Substance: TRASTUZUMAB
     Dosage: 450 MG, EVERY 3 WEEKS
     Route: 041
     Dates: start: 20161207, end: 20170426
  10. TAMOXIFEN [Suspect]
     Active Substance: TAMOXIFEN
     Indication: Breast cancer metastatic
     Dosage: 2.5 MG, 1X/DAY
     Route: 048
     Dates: start: 201806, end: 201809
  11. LETROZOLE [Suspect]
     Active Substance: LETROZOLE
     Indication: Breast cancer metastatic
     Dosage: 2.5 MG, 1X/DAY
     Route: 048
     Dates: start: 20171123, end: 201802
  12. CYCLOPHOSPHAMIDE [Suspect]
     Active Substance: CYCLOPHOSPHAMIDE
     Indication: Breast cancer metastatic
     Dosage: 900 MG, EVERY 3 WEEKS
     Route: 042
     Dates: start: 20170424, end: 20170607
  13. CLOTRIMAZOLE [Concomitant]
     Active Substance: CLOTRIMAZOLE
     Indication: Vulvovaginal candidiasis
     Dosage: UNK
     Dates: start: 201701, end: 201702
  14. LANSOPRAZOLE [Concomitant]
     Active Substance: LANSOPRAZOLE
     Indication: Prophylaxis
     Dosage: 30 MG, 1X/DAY
     Route: 048
     Dates: start: 201610
  15. LANSOPRAZOLE [Concomitant]
     Active Substance: LANSOPRAZOLE
     Indication: Dyspepsia
     Dosage: UNK
     Dates: start: 201702
  16. LOPERAMIDE [Concomitant]
     Active Substance: LOPERAMIDE
     Indication: Diarrhoea
     Dosage: 2 MG, 4X/DAY
     Route: 048
     Dates: start: 20161124
  17. CETIRIZINE [Concomitant]
     Active Substance: CETIRIZINE HYDROCHLORIDE
     Indication: Lacrimation increased
     Dosage: UNK
     Dates: start: 20170213
  18. CETIRIZINE [Concomitant]
     Active Substance: CETIRIZINE HYDROCHLORIDE
     Indication: Rhinorrhoea
  19. BENZYDAMINE [Concomitant]
     Active Substance: BENZYDAMINE
     Dosage: UNK
     Dates: start: 20170213

REACTIONS (6)
  - Fatigue [Recovered/Resolved]
  - Mouth ulceration [Not Recovered/Not Resolved]
  - Diarrhoea [Not Recovered/Not Resolved]
  - Joint swelling [Unknown]
  - Neutropenic sepsis [Recovered/Resolved]
  - Fatigue [Not Recovered/Not Resolved]

NARRATIVE: CASE EVENT DATE: 20161116
